FAERS Safety Report 22170555 (Version 2)
Quarter: 2023Q4

REPORT INFORMATION
  Report Type: Other
  Country: JP (occurrence: JP)
  Receive Date: 20230404
  Receipt Date: 20231108
  Transmission Date: 20240110
  Serious: Yes (Other)
  Sender: FDA-Public Use
  Company Number: JP-CHUGAI-2023011578AA

PATIENT
  Age: 66 Year
  Sex: Female

DRUGS (13)
  1. CELLCEPT [Suspect]
     Active Substance: MYCOPHENOLATE MOFETIL
     Indication: Prophylaxis against transplant rejection
     Dosage: UNK
     Route: 048
  2. TACROLIMUS [Concomitant]
     Active Substance: TACROLIMUS
     Dosage: UNK
     Route: 065
  3. METHYLPREDNISOLONE [Concomitant]
     Active Substance: METHYLPREDNISOLONE
     Indication: Prophylaxis against transplant rejection
  4. METHYLPREDNISOLONE [Concomitant]
     Active Substance: METHYLPREDNISOLONE
  5. METHYLPREDNISOLONE [Concomitant]
     Active Substance: METHYLPREDNISOLONE
  6. METHYLPREDNISOLONE [Concomitant]
     Active Substance: METHYLPREDNISOLONE
     Dosage: 0.5MG/KGX2
  7. METHYLPREDNISOLONE [Concomitant]
     Active Substance: METHYLPREDNISOLONE
  8. GABEXATE MESYLATE [Concomitant]
     Active Substance: GABEXATE MESYLATE
  9. PROSTANDIN [Concomitant]
     Dosage: 0.005-0.01MCG/KG/MIN
  10. PREDNISOLONE [Concomitant]
     Active Substance: PREDNISOLONE
     Indication: Prophylaxis against transplant rejection
  11. PREDNISOLONE [Concomitant]
     Active Substance: PREDNISOLONE
  12. PREDNISOLONE [Concomitant]
     Active Substance: PREDNISOLONE
  13. RITUXIMAB [Concomitant]
     Active Substance: RITUXIMAB
     Dosage: 375 MILLIGRAM/SQ. METER
     Route: 042

REACTIONS (2)
  - Thrombotic microangiopathy [Recovering/Resolving]
  - Pneumonia cytomegaloviral [Recovering/Resolving]
